FAERS Safety Report 19856087 (Version 1)
Quarter: 2021Q3

REPORT INFORMATION
  Report Type: Spontaneous
  Country: US (occurrence: US)
  Receive Date: 20210920
  Receipt Date: 20210920
  Transmission Date: 20211014
  Serious: Yes (Disabling)
  Sender: FDA-Public Use
  Company Number: None

PATIENT
  Age: 24 Year
  Sex: Female
  Weight: 58.5 kg

DRUGS (2)
  1. BUSPIRONE [Concomitant]
     Active Substance: BUSPIRONE HYDROCHLORIDE
  2. BUPROPION XL 300MG [Suspect]
     Active Substance: BUPROPION
     Dates: start: 20190209, end: 20210915

REACTIONS (2)
  - Lymphadenopathy [None]
  - Lymph node rupture [None]

NARRATIVE: CASE EVENT DATE: 20210915
